FAERS Safety Report 9521954 (Version 1)
Quarter: 2013Q3

REPORT INFORMATION
  Report Type: Spontaneous
  Country: GB (occurrence: None)
  Receive Date: 20130911
  Receipt Date: 20130911
  Transmission Date: 20140515
  Serious: Yes (Other)
  Sender: FDA-Public Use
  Company Number: GER/UKI/13/0034465

PATIENT
  Age: 35 Year
  Sex: Male

DRUGS (2)
  1. SERTRALINE (SERTRALINE) [Suspect]
     Indication: PRODUCT USED FOR UNKNOWN INDICATION
     Route: 042
     Dates: start: 20130816
  2. MEBEVERINE HYDROCHLORIDE (MEBEVERINE HYDROCHLORIDE) [Concomitant]

REACTIONS (3)
  - Dizziness [None]
  - Vision blurred [None]
  - Nausea [None]
